FAERS Safety Report 4825213-6 (Version None)
Quarter: 2005Q4

REPORT INFORMATION
  Report Type: 
  Country: None (occurrence: None)
  Receive Date: 20051109
  Receipt Date: 20051109
  Transmission Date: 20060501
  Serious: Yes (Hospitalization)
  Sender: FDA-Public Use
  Company Number: None

PATIENT
  Age: 85 Year
  Sex: Male
  Weight: 96 kg

DRUGS (1)
  1. CYCLOBENAPRINE [Suspect]
     Dosage: 10MG PO TID
     Route: 048

REACTIONS (3)
  - BEDRIDDEN [None]
  - CONFUSIONAL STATE [None]
  - PAIN IN EXTREMITY [None]
